FAERS Safety Report 9409489 (Version 2)
Quarter: 2013Q2

REPORT INFORMATION
  Report Type: Spontaneous
  Country: GB (occurrence: None)
  Receive Date: 20130404
  Receipt Date: 20130604
  Transmission Date: 20140414
  Serious: Yes (Hospitalization, Other)
  Sender: FDA-Public Use
  Company Number: KAD201303-000329

PATIENT
  Age: 52 Year
  Sex: Male

DRUGS (4)
  1. RIBAVIRIN [Suspect]
     Indication: HEPATITIS C
     Dates: start: 20121123
  2. INCIVO [Suspect]
     Indication: HEPATITIS C
     Route: 048
     Dates: start: 20121123, end: 20121210
  3. PEGASYS [Suspect]
     Indication: HEPATITIS C
     Dates: start: 20121123
  4. TACROLIMUS (TACROLIMUS) [Concomitant]

REACTIONS (6)
  - Psoriasis [None]
  - Off label use [None]
  - Drug resistance [None]
  - Hepatic function abnormal [None]
  - Liver transplant [None]
  - General physical health deterioration [None]
